FAERS Safety Report 9089198 (Version 1)
Quarter: 2013Q1

REPORT INFORMATION
  Report Type: Spontaneous
  Country: US (occurrence: US)
  Receive Date: 20130201
  Receipt Date: 20130201
  Transmission Date: 20140127
  Serious: No
  Sender: FDA-Public Use
  Company Number: US-GALDERMA-US-GDP-12412757

PATIENT
  Age: 17 Year
  Sex: Female
  Weight: 56 kg

DRUGS (2)
  1. EPIDUO [Suspect]
     Indication: ACNE
     Route: 061
     Dates: start: 20111207, end: 20111221
  2. EPIDUO [Suspect]
     Route: 061
     Dates: start: 20120104, end: 20120104

REACTIONS (2)
  - Ocular hyperaemia [Not Recovered/Not Resolved]
  - Eye swelling [Not Recovered/Not Resolved]
